FAERS Safety Report 23349082 (Version 1)
Quarter: 2023Q4

REPORT INFORMATION
  Report Type: Spontaneous
  Country: AU (occurrence: AU)
  Receive Date: 20231229
  Receipt Date: 20231229
  Transmission Date: 20240110
  Serious: Yes (Other)
  Sender: FDA-Public Use
  Company Number: AU-RDY-SPO/AUS/23/0032747

PATIENT
  Age: 60 Year
  Sex: Male

DRUGS (1)
  1. IMATINIB [Suspect]
     Active Substance: IMATINIB
     Indication: Product used for unknown indication

REACTIONS (3)
  - Malignant neoplasm progression [Unknown]
  - Gastrointestinal stromal tumour [Unknown]
  - Periorbital oedema [Unknown]
